FAERS Safety Report 21728303 (Version 1)
Quarter: 2022Q4

REPORT INFORMATION
  Report Type: Spontaneous
  Country: US (occurrence: US)
  Receive Date: 20221214
  Receipt Date: 20221214
  Transmission Date: 20230112
  Serious: No
  Sender: FDA-Public Use
  Company Number: US-PFIZER INC-202201369059

PATIENT
  Age: 62 Year
  Sex: Female

DRUGS (19)
  1. IBRANCE [Suspect]
     Active Substance: PALBOCICLIB
     Dosage: DAILY ON DAYS 1 THROUGH 21, THEN 7 DAYS OFF, THEN REPEAT
     Route: 048
     Dates: start: 202211
  2. ANASTROZOLE [Concomitant]
     Active Substance: ANASTROZOLE
     Dosage: UNK
  3. ASPIRIN [Concomitant]
     Active Substance: ASPIRIN
     Dosage: UNK
  4. DIPHENHYDRAMINE [Concomitant]
     Active Substance: DIPHENHYDRAMINE
     Dosage: UNK
  5. CRANBERRY [Concomitant]
     Active Substance: CRANBERRY
     Dosage: UNK
  6. TURMERIC + [Concomitant]
     Dosage: UNK
  7. GARLIC [Concomitant]
     Active Substance: GARLIC
     Dosage: UNK
  8. PROBIOTIC [BIFIDOBACTERIUM BIFIDUM;BIFIDOBACTERIUM LACTIS;BIFIDOBACTER [Concomitant]
     Dosage: UNK
  9. ACIDOPHILUS [Concomitant]
     Active Substance: LACTOBACILLUS ACIDOPHILUS
     Dosage: UNK
  10. ACETAMINOPHEN [Concomitant]
     Active Substance: ACETAMINOPHEN
     Dosage: UNK
  11. VITAMIN D3 [Concomitant]
     Active Substance: CHOLECALCIFEROL
     Dosage: UNK
  12. VITAMINS NOS [Concomitant]
     Active Substance: VITAMINS
     Dosage: UNK
  13. RESVERATROL [REYNOUTRIA JAPONICA;VITIS VINIFERA] [Concomitant]
     Dosage: UNK
  14. QUERCETIN [Concomitant]
     Active Substance: QUERCETIN
     Dosage: UNK
  15. ALOE VERA LEAF [Concomitant]
     Active Substance: ALOE VERA LEAF
     Dosage: UNK
  16. PREVAGEN [APOAEQUORIN;COLECALCIFEROL] [Concomitant]
     Dosage: UNK
  17. MUSHROOM COMPLEX [ALLIUM SATIVUM;GANODERMA LUCIDUM;HERICIUM ERINACEUS; [Concomitant]
     Dosage: UNK
  18. BEE POLLEN [Concomitant]
     Active Substance: BEE POLLEN
     Dosage: UNK
  19. BLUEBERRY [Concomitant]
     Active Substance: BLUEBERRY
     Dosage: UNK

REACTIONS (1)
  - Full blood count decreased [Unknown]
